FAERS Safety Report 8123056-1 (Version None)
Quarter: 2012Q1

REPORT INFORMATION
  Report Type: 
  Country: None (occurrence: None)
  Receive Date: 20120208
  Receipt Date: 20120206
  Transmission Date: 20120608
  Serious: No
  Sender: FDA-Public Use
  Company Number: US-PFIZER INC-2012032370

PATIENT
  Sex: Female
  Weight: 72.109 kg

DRUGS (1)
  1. LIPITOR [Suspect]
     Indication: BLOOD CHOLESTEROL INCREASED
     Dosage: 20 MG, 1X/DAY
     Route: 048
     Dates: start: 20020101

REACTIONS (3)
  - WEIGHT DECREASED [None]
  - MUSCULOSKELETAL DISCOMFORT [None]
  - SINUS HEADACHE [None]
